FAERS Safety Report 4343257-8 (Version None)
Quarter: 2004Q1

REPORT INFORMATION
  Report Type: 
  Country: None (occurrence: None)
  Receive Date: 20040325
  Receipt Date: 20040218
  Transmission Date: 20041129
  Serious: No
  Sender: FDA-Public Use
  Company Number: USA031153232

PATIENT
  Age: 34 Year
  Sex: Male
  Weight: 55 kg

DRUGS (11)
  1. FORTEO [Suspect]
     Indication: OSTEOPOROSIS
  2. HUMULIN R [Concomitant]
  3. HUMULIN N [Concomitant]
  4. PREVACID [Concomitant]
  5. PREDNISONE [Concomitant]
  6. CLARITIN [Concomitant]
  7. MIACALCIN [Concomitant]
  8. ACTONEL [Concomitant]
  9. FLONASE [Concomitant]
  10. ZANAFLEX [Concomitant]
  11. KLONOPIN [Concomitant]

REACTIONS (1)
  - NEPHROLITHIASIS [None]
